FAERS Safety Report 9547712 (Version 1)
Quarter: 2013Q3

REPORT INFORMATION
  Report Type: Spontaneous
  Country: US (occurrence: None)
  Receive Date: 20130923
  Receipt Date: 20130923
  Transmission Date: 20140515
  Serious: No
  Sender: FDA-Public Use
  Company Number: None

PATIENT
  Age: 67 Year
  Sex: Male
  Weight: 54.34 kg

DRUGS (2)
  1. CIPROFLOXACIN [Suspect]
     Indication: INFECTION
     Dosage: TWICE DAILY INFUSE OVER 1 HR
     Dates: start: 20130918
  2. HEPARIN [Suspect]

REACTIONS (3)
  - Medication error [None]
  - Intercepted drug dispensing error [None]
  - Circumstance or information capable of leading to medication error [None]
